FAERS Safety Report 7381419-6 (Version None)
Quarter: 2011Q1

REPORT INFORMATION
  Report Type: 
  Country: None (occurrence: None)
  Receive Date: 20110321
  Receipt Date: 20110310
  Transmission Date: 20110831
  Serious: Yes (Other)
  Sender: FDA-Public Use
  Company Number: 2011-UK-0034

PATIENT
  Age: 3 Year
  Sex: Female

DRUGS (2)
  1. FENTANYL [Suspect]
  2. ERYTHROMYCIN [Suspect]

REACTIONS (2)
  - WHEEZING [None]
  - DOCUMENTED HYPERSENSITIVITY TO ADMINISTERED DRUG [None]
